FAERS Safety Report 19059378 (Version 1)
Quarter: 2021Q1

REPORT INFORMATION
  Report Type: Report from Study
  Country: US (occurrence: US)
  Receive Date: 20210326
  Receipt Date: 20210326
  Transmission Date: 20210420
  Serious: Yes (Death, Other)
  Sender: FDA-Public Use
  Company Number: US-ACADIA PHARMACEUTICALS INC.-ACA-2021-PIM-000868

PATIENT
  Age: 78 Year
  Sex: Male

DRUGS (9)
  1. NUPLAZID [Suspect]
     Active Substance: PIMAVANSERIN TARTRATE
     Indication: PARKINSON^S DISEASE
     Dosage: 34 MILLIGRAM, QD
     Route: 048
     Dates: start: 20191023, end: 20210303
  2. COLCHICINE. [Concomitant]
     Active Substance: COLCHICINE
  3. ATORVASTATIN [Concomitant]
     Active Substance: ATORVASTATIN
  4. RASAGILINE. [Concomitant]
     Active Substance: RASAGILINE
  5. CARVEDILOL. [Concomitant]
     Active Substance: CARVEDILOL
  6. QUINAPRIL. [Concomitant]
     Active Substance: QUINAPRIL
  7. LEVOTHYROXINE. [Concomitant]
     Active Substance: LEVOTHYROXINE
  8. MELOXICAM. [Concomitant]
     Active Substance: MELOXICAM
  9. PRAMIPEXOLE. [Concomitant]
     Active Substance: PRAMIPEXOLE

REACTIONS (1)
  - Death [Recovered/Resolved]

NARRATIVE: CASE EVENT DATE: 20210303
